FAERS Safety Report 4915879-4 (Version None)
Quarter: 2006Q1

REPORT INFORMATION
  Report Type: 
  Country: None (occurrence: None)
  Receive Date: 20060214
  Receipt Date: 20060123
  Transmission Date: 20060701
  Serious: Yes (Other)
  Sender: FDA-Public Use
  Company Number: US_0509122196

PATIENT
  Age: 50 Year
  Sex: Male
  Weight: 113.6 kg

DRUGS (9)
  1. ZYPREXA [Suspect]
     Dosage: 15 MG; SEE IMAGE
     Dates: start: 20030606, end: 20030630
  2. ZYPREXA [Suspect]
     Dosage: 15 MG; SEE IMAGE
     Dates: start: 20030630, end: 20030714
  3. ZYPREXA [Suspect]
     Dosage: 15 MG; SEE IMAGE
     Dates: start: 20030714, end: 20030728
  4. ZYPREXA [Suspect]
     Dosage: 15 MG; SEE IMAGE
     Dates: start: 20011201, end: 20030801
  5. ZYPREXA [Suspect]
     Dosage: 15 MG; SEE IMAGE
     Dates: start: 20030728, end: 20030817
  6. ZOLOFT [Concomitant]
  7. GABITRIL /SCH/ (TIAGABINE HYDROCHLORIDE) [Concomitant]
  8. XANAX /USA/ (ALPRAZOLAM) [Concomitant]
  9. WELLBUTRIN SR [Concomitant]

REACTIONS (12)
  - BLOOD CHOLESTEROL INCREASED [None]
  - BLOOD SODIUM DECREASED [None]
  - BLOOD TRIGLYCERIDES INCREASED [None]
  - CHEST DISCOMFORT [None]
  - DEHYDRATION [None]
  - DIABETES MELLITUS NON-INSULIN-DEPENDENT [None]
  - FATIGUE [None]
  - GLYCOSYLATED HAEMOGLOBIN INCREASED [None]
  - HYPOGLYCAEMIA [None]
  - MYOCARDIAL INFARCTION [None]
  - NEPHROLITHIASIS [None]
  - WEIGHT DECREASED [None]
